FAERS Safety Report 15160821 (Version 1)
Quarter: 2018Q3

REPORT INFORMATION
  Report Type: Spontaneous
  Country: US (occurrence: US)
  Receive Date: 20180621
  Receipt Date: 20180621
  Transmission Date: 20181010
  Serious: Yes (Hospitalization)
  Sender: FDA-Public Use
  Company Number: None

PATIENT
  Age: 77 Year
  Sex: Female

DRUGS (1)
  1. CAPECITABINE. [Suspect]
     Active Substance: CAPECITABINE
     Indication: BREAST CANCER FEMALE
     Dosage: FOR 7 DAYS ON THEN 7 DAYS OFF
     Route: 048
     Dates: start: 20180216

REACTIONS (2)
  - Drug interaction [None]
  - Transient ischaemic attack [None]

NARRATIVE: CASE EVENT DATE: 20180612
